FAERS Safety Report 6750447-3 (Version None)
Quarter: 2010Q2

REPORT INFORMATION
  Report Type: 
  Country: None (occurrence: None)
  Receive Date: 20100527
  Receipt Date: 20100516
  Transmission Date: 20101027
  Serious: Yes (Disabling)
  Sender: FDA-Public Use
  Company Number: GB-DEXPHARM-20100603

PATIENT
  Age: 81 Year
  Sex: Female

DRUGS (9)
  1. CORSODYL [Suspect]
     Indication: ALVEOLAR OSTEITIS
     Dosage: 10 ML MILLILITRE(S), SEP. DOSAGES/INTERVAL: 2 IN 1 DAY
  2. AMITRIPTYLINE [Concomitant]
  3. BISOPROLOL [Concomitant]
  4. CO-AMILOFRUSE [Concomitant]
  5. ACETAMINOPHEN AND CODEINE PHOSPHATE [Concomitant]
  6. DIGOXIN [Concomitant]
  7. GLICLAZIDE [Concomitant]
  8. GLUCOSAMINE [Concomitant]
  9. WARFARIN [Concomitant]

REACTIONS (3)
  - ACTIVITIES OF DAILY LIVING IMPAIRED [None]
  - DYSPNOEA [None]
  - FATIGUE [None]
